FAERS Safety Report 20570859 (Version 1)
Quarter: 2022Q1

REPORT INFORMATION
  Report Type: Spontaneous
  Country: BR (occurrence: BR)
  Receive Date: 20220309
  Receipt Date: 20220309
  Transmission Date: 20220424
  Serious: Yes (Hospitalization)
  Sender: FDA-Public Use
  Company Number: BR-MACLEODS PHARMACEUTICALS US LTD-MAC2022034676

PATIENT

DRUGS (3)
  1. TENOFOVIR [Suspect]
     Active Substance: TENOFOVIR
     Indication: HIV infection
     Dosage: UNK
     Route: 065
  2. ZIDOVUDINE [Concomitant]
     Active Substance: ZIDOVUDINE
     Indication: HIV infection
     Dosage: UNK
     Route: 065
  3. LAMIVUDINE [Concomitant]
     Active Substance: LAMIVUDINE
     Indication: HIV infection
     Dosage: UNK
     Route: 065

REACTIONS (11)
  - Musculoskeletal toxicity [Recovering/Resolving]
  - Nephropathy toxic [Recovering/Resolving]
  - Vitamin D deficiency [Recovering/Resolving]
  - Hyperparathyroidism secondary [Recovering/Resolving]
  - Chronic kidney disease [Recovering/Resolving]
  - Ileus [Recovered/Resolved]
  - Osteonecrosis [Recovering/Resolving]
  - Fracture [Recovering/Resolving]
  - Fanconi syndrome [Recovering/Resolving]
  - Acute kidney injury [Recovering/Resolving]
  - Bone density decreased [Recovering/Resolving]
